FAERS Safety Report 4386185-4 (Version None)
Quarter: 2004Q2

REPORT INFORMATION
  Report Type: 
  Country: None (occurrence: None)
  Receive Date: 20040628
  Receipt Date: 20040628
  Transmission Date: 20050107
  Serious: Yes (Hospitalization)
  Sender: FDA-Public Use
  Company Number: None

PATIENT
  Sex: Male
  Weight: 104.2 kg

DRUGS (1)
  1. ABCIXIMAB [Suspect]
     Indication: ACUTE CORONARY SYNDROME
     Dosage: 25MG IV X 1 THEN 0.125 MCG/KG/MIN X 12HRS
     Route: 042
     Dates: start: 20040621, end: 20040622

REACTIONS (1)
  - THROMBOCYTOPENIA [None]
